FAERS Safety Report 17080750 (Version 1)
Quarter: 2019Q4

REPORT INFORMATION
  Report Type: Spontaneous
  Country: US (occurrence: US)
  Receive Date: 20191127
  Receipt Date: 20191127
  Transmission Date: 20200122
  Serious: Yes (Other)
  Sender: FDA-Public Use
  Company Number: US-ZYDUS-043582

PATIENT
  Age: 53 Year
  Sex: Female

DRUGS (2)
  1. AMLODIPINE [Concomitant]
     Active Substance: AMLODIPINE BESYLATE
     Indication: PRODUCT USED FOR UNKNOWN INDICATION
     Route: 065
  2. BOSENTAN. [Suspect]
     Active Substance: BOSENTAN
     Indication: PULMONARY ARTERIAL HYPERTENSION
     Route: 048
     Dates: start: 20190605

REACTIONS (11)
  - Blood magnesium decreased [Unknown]
  - Loss of consciousness [Unknown]
  - Cystitis [Unknown]
  - Pneumonia [Unknown]
  - Blood potassium decreased [Unknown]
  - Thermal burn [Unknown]
  - Rib fracture [Unknown]
  - Scratch [Unknown]
  - Malaise [Unknown]
  - Dehydration [Unknown]
  - Skin laceration [Unknown]

NARRATIVE: CASE EVENT DATE: 2019
